FAERS Safety Report 10383522 (Version 2)
Quarter: 2014Q3

REPORT INFORMATION
  Report Type: Report from Study
  Country: US (occurrence: US)
  Receive Date: 20140814
  Receipt Date: 20140901
  Transmission Date: 20150326
  Serious: Yes (Hospitalization, Other)
  Sender: FDA-Public Use
  Company Number: US-BIOGENIDEC-2014BI080878

PATIENT
  Age: 62 Year
  Sex: Female
  Weight: 77 kg

DRUGS (8)
  1. SOLU-MEDROL [Concomitant]
     Active Substance: METHYLPREDNISOLONE SODIUM SUCCINATE
     Route: 042
  2. LIPITOR [Concomitant]
     Active Substance: ATORVASTATIN CALCIUM
  3. TOVIAZ [Concomitant]
     Active Substance: FESOTERODINE FUMARATE
  4. METOPROLOL [Concomitant]
     Active Substance: METOPROLOL
  5. AVONEX [Suspect]
     Active Substance: INTERFERON BETA-1A
     Indication: SECONDARY PROGRESSIVE MULTIPLE SCLEROSIS
     Route: 030
     Dates: start: 20040229, end: 20140403
  6. ZOCOR [Concomitant]
     Active Substance: SIMVASTATIN
  7. FISH OIL [Concomitant]
     Active Substance: FISH OIL
  8. SIMVASTIN [Concomitant]
     Active Substance: SIMVASTATIN

REACTIONS (8)
  - Vertigo positional [Unknown]
  - Defaecation urgency [Unknown]
  - Cerebral infarction [Not Recovered/Not Resolved]
  - Micturition urgency [Recovered/Resolved]
  - Muscle spasticity [Unknown]
  - Myalgia [Unknown]
  - Haemorrhagic cerebral infarction [Not Recovered/Not Resolved]
  - Visual impairment [Not Recovered/Not Resolved]

NARRATIVE: CASE EVENT DATE: 2009
